FAERS Safety Report 4729171-4 (Version None)
Quarter: 2005Q3

REPORT INFORMATION
  Report Type: 
  Country: None (occurrence: None)
  Receive Date: 20050729
  Receipt Date: 20040618
  Transmission Date: 20060218
  Serious: No
  Sender: FDA-Public Use
  Company Number: US-GLAXOSMITHKLINE-A0515215A

PATIENT
  Age: 34 Year
  Sex: Female

DRUGS (7)
  1. IMITREX [Suspect]
     Indication: MIGRAINE
     Dosage: 50MG EVERY TWO WEEKS
     Route: 048
     Dates: start: 19930101
  2. IMITREX [Suspect]
  3. LEVOXYL [Concomitant]
  4. GLUCOPHAGE [Concomitant]
  5. SPIRONOLACTONE [Concomitant]
  6. ALLEGRA-D [Concomitant]
  7. CELEBREX [Concomitant]

REACTIONS (1)
  - NO ADVERSE EFFECT [None]
